FAERS Safety Report 12914059 (Version 1)
Quarter: 2016Q4

REPORT INFORMATION
  Report Type: Report from Study
  Country: ES (occurrence: ES)
  Receive Date: 20161105
  Receipt Date: 20161105
  Transmission Date: 20170207
  Serious: Yes (Other)
  Sender: FDA-Public Use
  Company Number: ES-ACCORD-045306

PATIENT
  Age: 57 Year
  Sex: Female

DRUGS (7)
  1. FLUOROURACIL. [Suspect]
     Active Substance: FLUOROURACIL
     Indication: COLORECTAL CANCER METASTATIC
     Dosage: 5FU BOLUS, 400 MG/M2 ON DAY 1; 5FU CONTINUOUS INFUSION, 2,400 MG/M2 ON DAY 1
     Route: 040
     Dates: start: 201206
  2. OXALIPLATIN. [Suspect]
     Active Substance: OXALIPLATIN
     Indication: COLORECTAL CANCER METASTATIC
     Dosage: ON DAY 01: 21 DAY CYCLE
     Dates: start: 201005
  3. CAPECITABINE. [Concomitant]
     Active Substance: CAPECITABINE
     Indication: COLORECTAL CANCER METASTATIC
     Dosage: EVERY 12 HOURS: ON DAY 01 TO 14: 21 DAY CYCLE
     Dates: start: 201005
  4. IRINOTECAN [Suspect]
     Active Substance: IRINOTECAN
     Indication: COLORECTAL CANCER METASTATIC
     Dates: start: 201206
  5. FOLINIC ACID [Suspect]
     Active Substance: LEUCOVORIN
     Indication: COLORECTAL CANCER METASTATIC
     Dosage: LEUCOVORIN, 200 MG/M2 ON DAY 1
     Dates: start: 201206
  6. AFLIBERCEPT [Suspect]
     Active Substance: AFLIBERCEPT
     Indication: COLORECTAL CANCER METASTATIC
     Dosage: 4 MG/KG ON DAY 1; 14 DAY CYCLE
  7. BEVACIZUMAB [Concomitant]
     Active Substance: BEVACIZUMAB
     Indication: COLORECTAL CANCER METASTATIC
     Dosage: ON DAY 01: 21 DAY CYCLE
     Dates: start: 201005

REACTIONS (7)
  - Pharyngotonsillitis [Recovering/Resolving]
  - Respiratory tract infection [Unknown]
  - Neutropenia [Unknown]
  - Hypertension [Recovering/Resolving]
  - Neurotoxicity [Not Recovered/Not Resolved]
  - Mucosal inflammation [Unknown]
  - Toxicity to various agents [Unknown]
